FAERS Safety Report 21540907 (Version 1)
Quarter: 2022Q4

REPORT INFORMATION
  Report Type: Spontaneous
  Country: FR (occurrence: FR)
  Receive Date: 20221102
  Receipt Date: 20221102
  Transmission Date: 20230112
  Serious: Yes (Hospitalization, Other)
  Sender: FDA-Public Use
  Company Number: FR-DENTSPLY-2022SCDP000313

PATIENT
  Age: 33 Year
  Sex: Female
  Weight: 113 kg

DRUGS (5)
  1. EPINEPHRINE BITARTRATE\LIDOCAINE HYDROCHLORIDE [Suspect]
     Active Substance: EPINEPHRINE BITARTRATE\LIDOCAINE HYDROCHLORIDE
     Indication: Endoscopy
     Dosage: 50 MILLIGRAM TOTAL
     Route: 042
     Dates: start: 20180704, end: 20180704
  2. CEFAZOLIN [Suspect]
     Active Substance: CEFAZOLIN
     Indication: Antibiotic prophylaxis
     Dosage: 2 GRAM TOTAL
     Route: 042
     Dates: start: 20180704, end: 20180704
  3. CHLORHEXIDINE ACETATE [Suspect]
     Active Substance: CHLORHEXIDINE ACETATE
     Indication: Infection prophylaxis
     Dosage: 1 DOSAGE FORM TOTAL
     Route: 003
     Dates: start: 20180704, end: 20180704
  4. SUCCINYLCHOLINE CHLORIDE [Suspect]
     Active Substance: SUCCINYLCHOLINE CHLORIDE
     Indication: General anaesthesia
     Dosage: 100 MILLIGRAM TOTAL
     Route: 042
     Dates: start: 20180704, end: 20180704
  5. DIPRIVAN [Suspect]
     Active Substance: PROPOFOL
     Indication: General anaesthesia
     Dosage: 200 MILLIGRAM TOTAL
     Route: 042
     Dates: start: 20180704, end: 20180704

REACTIONS (2)
  - Anaphylactic shock [Recovered/Resolved]
  - Allergy test negative [Recovered/Resolved]

NARRATIVE: CASE EVENT DATE: 20180704
